FAERS Safety Report 18512589 (Version 1)
Quarter: 2020Q4

REPORT INFORMATION
  Report Type: Spontaneous
  Country: US (occurrence: US)
  Receive Date: 20201117
  Receipt Date: 20201117
  Transmission Date: 20210114
  Serious: No
  Sender: FDA-Public Use
  Company Number: US-AMGEN-USASP2020185862

PATIENT
  Age: 53 Year
  Sex: Female

DRUGS (3)
  1. ESCITALOPRAM [Concomitant]
     Active Substance: ESCITALOPRAM OXALATE
     Dosage: UNK
  2. METHYLPRED [Concomitant]
     Active Substance: METHYLPREDNISOLONE
     Dosage: UNK
  3. OTEZLA [Suspect]
     Active Substance: APREMILAST
     Indication: RHEUMATOID ARTHRITIS
     Dosage: 30 MILLIGRAM, BID
     Route: 048
     Dates: start: 20200131, end: 20201101

REACTIONS (2)
  - Diarrhoea [Not Recovered/Not Resolved]
  - Off label use [Unknown]

NARRATIVE: CASE EVENT DATE: 20200131
